FAERS Safety Report 7362955-5 (Version None)
Quarter: 2011Q1

REPORT INFORMATION
  Report Type: 
  Country: None (occurrence: None)
  Receive Date: 20110321
  Receipt Date: 20110315
  Transmission Date: 20110831
  Serious: Yes (Hospitalization)
  Sender: FDA-Public Use
  Company Number: FR-SP-2010-07169

PATIENT
  Sex: Male

DRUGS (1)
  1. IMMUCYST [Suspect]
     Indication: BLADDER CANCER
     Route: 043
     Dates: start: 20100930, end: 20100930

REACTIONS (5)
  - CHILLS [None]
  - PYREXIA [None]
  - COUGH [None]
  - HYPERHIDROSIS [None]
  - BOVINE TUBERCULOSIS [None]
